FAERS Safety Report 23226731 (Version 1)
Quarter: 2023Q4

REPORT INFORMATION
  Report Type: Spontaneous
  Country: FR (occurrence: FR)
  Receive Date: 20231124
  Receipt Date: 20231124
  Transmission Date: 20240109
  Serious: Yes (Hospitalization)
  Sender: FDA-Public Use
  Company Number: FR-AFSSAPS-TO2023001462

PATIENT
  Age: 81 Year
  Sex: Male

DRUGS (1)
  1. VALACYCLOVIR [Suspect]
     Active Substance: VALACYCLOVIR HYDROCHLORIDE
     Indication: Herpes zoster
     Dosage: 3 GRAM, 1G 3X/D
     Route: 048
     Dates: start: 20230723, end: 20230724

REACTIONS (3)
  - Somnolence [Recovered/Resolved]
  - Decreased appetite [Recovered/Resolved]
  - Speech disorder [Recovered/Resolved]

NARRATIVE: CASE EVENT DATE: 20230724
